FAERS Safety Report 10286304 (Version 1)
Quarter: 2014Q3

REPORT INFORMATION
  Report Type: Spontaneous
  Country: US (occurrence: US)
  Receive Date: 20140709
  Receipt Date: 20140709
  Transmission Date: 20150326
  Serious: Yes (Other)
  Sender: FDA-Public Use
  Company Number: US-NAPPMUNDI-USA-2014-0115309

PATIENT
  Sex: Female

DRUGS (2)
  1. OXYCODONE HYDROCHLORIDE (SIMILAR TO NDA 22-272) [Suspect]
     Active Substance: OXYCODONE HYDROCHLORIDE
     Indication: PAIN
     Dosage: 30 MG, Q6H
     Route: 048
  2. OXYCONTIN [Suspect]
     Active Substance: OXYCODONE HYDROCHLORIDE
     Indication: PAIN
     Dosage: 80 MG, BID
     Route: 048

REACTIONS (15)
  - Intervertebral disc protrusion [Unknown]
  - Convulsion [Unknown]
  - Formication [Unknown]
  - Gait disturbance [Unknown]
  - Activities of daily living impaired [Unknown]
  - Drug withdrawal syndrome [Unknown]
  - Dysstasia [Unknown]
  - Unevaluable event [Unknown]
  - Intentional product misuse [Unknown]
  - Transient ischaemic attack [Unknown]
  - Nerve compression [Unknown]
  - Movement disorder [Unknown]
  - Blood pressure increased [Unknown]
  - Pain [Unknown]
  - Insomnia [Unknown]
